FAERS Safety Report 6794183-6 (Version None)
Quarter: 2010Q2

REPORT INFORMATION
  Report Type: 
  Country: None (occurrence: None)
  Receive Date: 20100624
  Receipt Date: 20080212
  Transmission Date: 20101027
  Serious: No
  Sender: FDA-Public Use
  Company Number: US-PFIZER INC-ENC200800027

PATIENT
  Sex: Female

DRUGS (3)
  1. ARGATROBAN [Suspect]
     Indication: ATRIAL FIBRILLATION
     Dosage: 2 MCH/KG/MIN,FREQUENCY:  UNK
     Route: 042
     Dates: start: 20080211, end: 20080201
  2. ARGATROBAN [Suspect]
     Indication: HEPARIN-INDUCED THROMBOCYTOPENIA
  3. WARFARIN SODIUM [Concomitant]

REACTIONS (1)
  - COAGULATION TIME PROLONGED [None]
